FAERS Safety Report 16408152 (Version 2)
Quarter: 2019Q3

REPORT INFORMATION
  Report Type: Spontaneous
  Country: US (occurrence: US)
  Receive Date: 20190610
  Receipt Date: 20190801
  Transmission Date: 20191004
  Serious: Yes (Hospitalization)
  Sender: FDA-Public Use
  Company Number: US-HIKMA PHARMACEUTICALS USA INC.-US-H14001-19-03731

PATIENT
  Age: 58 Year
  Sex: Male
  Weight: 78.38 kg

DRUGS (6)
  1. PREDNISONE. [Suspect]
     Active Substance: PREDNISONE
     Indication: ACUTE GRAFT VERSUS HOST DISEASE
     Route: 048
     Dates: start: 20171227
  2. ITACITINIB/PLACEBO [Suspect]
     Active Substance: ITACITINIB
     Indication: ACUTE GRAFT VERSUS HOST DISEASE
     Route: 048
     Dates: start: 20171122, end: 20180103
  3. PREDNISONE. [Suspect]
     Active Substance: PREDNISONE
     Route: 048
     Dates: start: 20180102
  4. ITACITINIB/PLACEBO [Suspect]
     Active Substance: ITACITINIB
     Route: 065
     Dates: start: 20180105
  5. SIROLIMUS. [Concomitant]
     Active Substance: SIROLIMUS
     Indication: PRODUCT USED FOR UNKNOWN INDICATION
     Route: 065
     Dates: start: 20180105
  6. TACROLIMUS. [Suspect]
     Active Substance: TACROLIMUS
     Indication: PRODUCT USED FOR UNKNOWN INDICATION
     Route: 065
     Dates: end: 20180104

REACTIONS (3)
  - Hypertension [Unknown]
  - Acute kidney injury [Recovered/Resolved]
  - Vomiting [Recovered/Resolved]

NARRATIVE: CASE EVENT DATE: 20180103
